FAERS Safety Report 22271463 (Version 1)
Quarter: 2023Q2

REPORT INFORMATION
  Report Type: Spontaneous
  Country: CN (occurrence: CN)
  Receive Date: 20230501
  Receipt Date: 20230501
  Transmission Date: 20230721
  Serious: Yes (Death, Hospitalization)
  Sender: FDA-Public Use
  Company Number: CN-STRIDES ARCOLAB LIMITED-2023SP006338

PATIENT
  Age: 67 Year
  Sex: Female

DRUGS (18)
  1. ACYCLOVIR [Suspect]
     Active Substance: ACYCLOVIR
     Indication: Herpes simplex
     Dosage: UNK
     Route: 065
  2. AZITHROMYCIN [Concomitant]
     Active Substance: AZITHROMYCIN
     Indication: Ureaplasma infection
     Dosage: UNK
     Route: 065
  3. TACROLIMUS [Concomitant]
     Active Substance: TACROLIMUS
     Indication: Immunosuppressant drug therapy
     Dosage: UNK
     Route: 065
  4. TACROLIMUS [Concomitant]
     Active Substance: TACROLIMUS
     Indication: Lung transplant
  5. METHYLPREDNISOLONE [Concomitant]
     Active Substance: METHYLPREDNISOLONE
     Indication: Immunosuppressant drug therapy
     Dosage: UNK
     Route: 065
  6. METHYLPREDNISOLONE [Concomitant]
     Active Substance: METHYLPREDNISOLONE
     Indication: Lung transplant
  7. VORICONAZOLE [Concomitant]
     Active Substance: VORICONAZOLE
     Indication: Anti-infective therapy
     Dosage: UNK
     Route: 065
  8. CEFOPERAZONE SODIUM\SULBACTAM SODIUM [Concomitant]
     Active Substance: CEFOPERAZONE SODIUM\SULBACTAM SODIUM
     Indication: Anti-infective therapy
     Dosage: UNK
     Route: 065
  9. MIDAZOLAM [Concomitant]
     Active Substance: MIDAZOLAM
     Indication: Epilepsy
     Dosage: UNK
     Route: 042
  10. MIDAZOLAM [Concomitant]
     Active Substance: MIDAZOLAM
     Indication: Epilepsy
  11. PROPOFOL [Concomitant]
     Active Substance: PROPOFOL
     Indication: Epilepsy
     Dosage: UNK
     Route: 042
  12. PROPOFOL [Concomitant]
     Active Substance: PROPOFOL
     Indication: Epilepsy
  13. REMIFENTANIL [Concomitant]
     Active Substance: REMIFENTANIL
     Indication: Epilepsy
     Dosage: UNK
     Route: 042
  14. REMIFENTANIL [Concomitant]
     Active Substance: REMIFENTANIL
     Indication: Epilepsy
  15. MANNITOL [Concomitant]
     Active Substance: MANNITOL
     Indication: Intracranial pressure increased
     Dosage: UNK, INFUSION
     Route: 065
  16. ORNITHINE ASPARTATE [Concomitant]
     Active Substance: ORNITHINE ASPARTATE
     Indication: Hyperammonaemia
     Dosage: UNK
     Route: 065
  17. ORNITHINE ASPARTATE [Concomitant]
     Active Substance: ORNITHINE ASPARTATE
     Dosage: UNK, RIFAXIMIN COMBINED WITH ORNITHINE ASPARTATE
     Route: 065
  18. RIFAXIMIN [Concomitant]
     Active Substance: RIFAXIMIN
     Indication: Hyperammonaemia
     Dosage: UNK
     Route: 065

REACTIONS (1)
  - Drug ineffective [Fatal]
